FAERS Safety Report 8781243 (Version 1)
Quarter: 2012Q4

REPORT INFORMATION
  Report Type: 
  Country: US (occurrence: US)
  Receive Date: 20120913
  Receipt Date: 20120913
  Transmission Date: 20130627
  Serious: No
  Sender: FDA-Public Use
  Company Number: US-VERTEX PHARMACEUTICAL INC.-AE-2012-006809

PATIENT

DRUGS (5)
  1. INCIVEK [Suspect]
     Indication: HEPATITIS C
     Route: 048
     Dates: start: 20120504
  2. PEGASYS PROCLICK [Concomitant]
     Indication: HEPATITIS C
     Route: 058
     Dates: start: 20120504
  3. RIBAVIRIN [Concomitant]
     Indication: HEPATITIS C
     Route: 048
     Dates: start: 20120504
  4. PROTEIN POWDER [Concomitant]
  5. NEUPOGEN [Concomitant]

REACTIONS (3)
  - Dehydration [Unknown]
  - Muscle spasms [Recovered/Resolved]
  - Haemoglobin decreased [Unknown]
